FAERS Safety Report 5945936-5 (Version None)
Quarter: 2008Q4

REPORT INFORMATION
  Report Type: 
  Country: None (occurrence: None)
  Receive Date: 20081110
  Receipt Date: 20081106
  Transmission Date: 20090506
  Serious: Yes (Other)
  Sender: FDA-Public Use
  Company Number: US-BRISTOL-MYERS SQUIBB COMPANY-14397897

PATIENT
  Sex: Male

DRUGS (2)
  1. COUMADIN [Suspect]
     Dates: start: 19850101
  2. PLAVIX [Suspect]

REACTIONS (3)
  - CEREBROVASCULAR ACCIDENT [None]
  - SKIN DISCOLOURATION [None]
  - TRANSIENT ISCHAEMIC ATTACK [None]
